FAERS Safety Report 15483653 (Version 1)
Quarter: 2018Q4

REPORT INFORMATION
  Report Type: Spontaneous
  Country: US (occurrence: US)
  Receive Date: 20181003
  Receipt Date: 20181003
  Transmission Date: 20190205
  Serious: No
  Sender: FDA-Public Use
  Company Number: None

PATIENT
  Age: 68 Year
  Sex: Female
  Weight: 90.26 kg

DRUGS (10)
  1. DILTIAZEM ER 120MG CAP PRESCRIBED ONE TAB LET DAILY [Suspect]
     Active Substance: DILTIAZEM
     Dosage: ?          QUANTITY:120 MG MILLIGRAM(S);?
     Route: 048
     Dates: start: 20180817, end: 20180825
  2. CYMBALTA [Concomitant]
     Active Substance: DULOXETINE HYDROCHLORIDE
  3. METFORMIN [Concomitant]
     Active Substance: METFORMIN HYDROCHLORIDE
  4. BENTYL PRN [Concomitant]
  5. LOVASTATIN. [Concomitant]
     Active Substance: LOVASTATIN
  6. SINGULAIR [Concomitant]
     Active Substance: MONTELUKAST SODIUM
  7. LOSARTIN [Concomitant]
     Active Substance: LOSARTAN
  8. IBUPROFEN PRN [Concomitant]
  9. VICODIN PRN [Concomitant]
  10. ALPRAZOLAM. [Concomitant]
     Active Substance: ALPRAZOLAM

REACTIONS (3)
  - Agitation [None]
  - Suicidal ideation [None]
  - Abnormal behaviour [None]

NARRATIVE: CASE EVENT DATE: 20180824
